FAERS Safety Report 6843061-2 (Version None)
Quarter: 2010Q3

REPORT INFORMATION
  Report Type: 
  Country: None (occurrence: None)
  Receive Date: 20100712
  Receipt Date: 20100630
  Transmission Date: 20110219
  Serious: Yes (Other)
  Sender: FDA-Public Use
  Company Number: 201007001

PATIENT
  Age: 35 Year
  Sex: Male
  Weight: 86.1834 kg

DRUGS (3)
  1. TESTIM [Suspect]
     Indication: BLOOD TESTOSTERONE DECREASED
     Dosage: 50 MG, 1 IN 1 D, TRANSDERMAL
     Route: 062
     Dates: start: 20100213
  2. ZYRTEC [Suspect]
     Indication: SEASONAL ALLERGY
     Dates: end: 20100301
  3. DRANK COFFEE REGULARLY (CAFFEINE) [Suspect]
     Indication: CAFFEINE CONSUMPTION
     Dates: end: 20100301

REACTIONS (2)
  - EPILEPSY [None]
  - GRAND MAL CONVULSION [None]
